FAERS Safety Report 7381139-8 (Version None)
Quarter: 2011Q1

REPORT INFORMATION
  Report Type: 
  Country: None (occurrence: None)
  Receive Date: 20110329
  Receipt Date: 20101230
  Transmission Date: 20110831
  Serious: No
  Sender: FDA-Public Use
  Company Number: US-AMGEN-USASP2010012470

PATIENT
  Age: 49 Year
  Sex: Female

DRUGS (6)
  1. SENSIPAR [Suspect]
     Indication: HYPERPARATHYROIDISM SECONDARY
     Dosage: UNK
  2. EPOGEN [Suspect]
     Route: 042
  3. RENVELA [Concomitant]
  4. SYNTHROID [Concomitant]
  5. B PLUS [Concomitant]
  6. EPOGEN [Suspect]
     Indication: RENAL FAILURE CHRONIC
     Dosage: UNK
     Route: 058
     Dates: start: 19770101

REACTIONS (2)
  - INJECTION SITE SCAR [None]
  - INJECTION SITE PAIN [None]
